FAERS Safety Report 6446481-3 (Version None)
Quarter: 2009Q4

REPORT INFORMATION
  Report Type: 
  Country: None (occurrence: None)
  Receive Date: 20091119
  Receipt Date: 20091117
  Transmission Date: 20100525
  Serious: Yes (Death)
  Sender: FDA-Public Use
  Company Number: PHEH2009US15625

PATIENT
  Sex: Male

DRUGS (2)
  1. EXJADE [Suspect]
     Indication: MYELODYSPLASTIC SYNDROME
     Dosage: 1500 MG, QD
     Dates: start: 20080611, end: 20091108
  2. EXJADE [Suspect]
     Indication: IRON OVERLOAD

REACTIONS (1)
  - CHRONIC MYELOID LEUKAEMIA [None]
